FAERS Safety Report 15036025 (Version 1)
Quarter: 2018Q2

REPORT INFORMATION
  Report Type: Spontaneous
  Country: US (occurrence: US)
  Receive Date: 20180620
  Receipt Date: 20180620
  Transmission Date: 20180711
  Serious: Yes (Hospitalization)
  Sender: FDA-Public Use
  Company Number: US-SA-2018SA161188

PATIENT
  Age: 25 Year
  Sex: Female
  Weight: 38.55 kg

DRUGS (23)
  1. ALDURAZYME [Suspect]
     Active Substance: LARONIDASE
     Indication: MUCOPOLYSACCHARIDOSIS
     Dosage: 0.60 MG/KG, QW
     Route: 041
  2. SODIUM CHLORIDE. [Concomitant]
     Active Substance: SODIUM CHLORIDE
     Indication: FLUSHING
     Dosage: 0.9 %
     Route: 042
     Dates: start: 20180319
  3. FERROUS SULPHATE [FERROUS SULFATE] [Concomitant]
     Dosage: 325 MG
     Route: 048
     Dates: start: 20180223
  4. IBUPROFEN. [Concomitant]
     Active Substance: IBUPROFEN
     Dosage: 15 ML, Q6H
     Route: 048
     Dates: start: 20170601
  5. SYSTANE (HYPROMELLOSE 2910 (4000 MPA.S)) [Concomitant]
     Active Substance: HYPROMELLOSE 2910 (4000 MPA.S)
     Dosage: UNK UNK, TID
     Route: 031
     Dates: start: 20161004
  6. SINGULAIR [Concomitant]
     Active Substance: MONTELUKAST SODIUM
     Dosage: 2 DF
     Dates: start: 20120827
  7. ENALAPRIL [Concomitant]
     Active Substance: ENALAPRIL
     Dosage: 3.75 DF
     Route: 048
     Dates: start: 20171211
  8. VESICARE [Concomitant]
     Active Substance: SOLIFENACIN SUCCINATE
     Dosage: 1 DF, QD
     Route: 048
     Dates: start: 20140206
  9. DIPHENHYDRAMINE. [Concomitant]
     Active Substance: DIPHENHYDRAMINE
     Dosage: 1 DF, PRN
     Route: 048
     Dates: start: 20170227
  10. NORMAL SALINE [Concomitant]
     Active Substance: SODIUM CHLORIDE
     Indication: FLUSHING
     Dosage: 0.9 %
     Route: 042
     Dates: start: 20180319
  11. DELSYM [Concomitant]
     Active Substance: DEXTROMETHORPHAN
     Dosage: 1 DF, BID
     Route: 048
     Dates: start: 20170601
  12. BACITRACIN. [Concomitant]
     Active Substance: BACITRACIN
     Dosage: 500 U, BID
     Route: 061
     Dates: start: 20170120
  13. EPINEPHRINE. [Concomitant]
     Active Substance: EPINEPHRINE
     Indication: ANAPHYLACTIC REACTION
     Dosage: 0.3 MG
     Route: 030
     Dates: start: 20180319
  14. XARELTO [Concomitant]
     Active Substance: RIVAROXABAN
     Dosage: 1 DF, QD
     Route: 048
     Dates: start: 20161004
  15. PREDNISOLONE. [Concomitant]
     Active Substance: PREDNISOLONE
     Dosage: UNK UNK, QD
     Route: 031
     Dates: start: 20140206
  16. HEPARIN [Concomitant]
     Active Substance: HEPARIN SODIUM
     Indication: FLUSHING
     Dosage: UNK
     Dates: start: 20180319
  17. ALBUTEROL [SALBUTAMOL] [Concomitant]
     Dosage: 2 PUFFS
     Route: 048
     Dates: start: 20170601
  18. OXYGEN. [Concomitant]
     Active Substance: OXYGEN
     Dosage: 2 L
     Route: 045
     Dates: start: 20170302
  19. VICKS NYQUIL [Concomitant]
     Active Substance: ACETAMINOPHEN\DEXTROMETHORPHAN HYDROBROMIDE\DOXYLAMINE SUCCINATE
     Dosage: 2 TEASPOONFULL, HS
     Route: 048
     Dates: start: 20170227
  20. TRELEGY ELLIPTA [Concomitant]
     Active Substance: FLUTICASONE FUROATE\UMECLIDINIUM BROMIDE\VILANTEROL TRIFENATATE
     Dosage: 1 DF
     Dates: start: 20120827
  21. LMX 4 [Concomitant]
     Indication: PREMEDICATION
     Dosage: 4 %
     Route: 061
     Dates: start: 20180319
  22. ACETAMINOPHEN. [Concomitant]
     Active Substance: ACETAMINOPHEN
     Dosage: 2 DF, PRN
     Route: 048
     Dates: start: 20170601
  23. QVAR [Concomitant]
     Active Substance: BECLOMETHASONE DIPROPIONATE
     Dosage: UNK UNK, BID
     Route: 048
     Dates: start: 20120306

REACTIONS (1)
  - Pneumonia [Unknown]
